FAERS Safety Report 11631902 (Version 1)
Quarter: 2015Q4

REPORT INFORMATION
  Report Type: Spontaneous
  Country: GB (occurrence: None)
  Receive Date: 20151013
  Receipt Date: 20151013
  Transmission Date: 20160304
  Serious: Yes (Disabling, Other)
  Sender: FDA-Public Use
  Company Number: None

PATIENT
  Age: 24 Year
  Sex: Male
  Weight: 80 kg

DRUGS (3)
  1. ARIPIPRAZOLE. [Suspect]
     Active Substance: ARIPIPRAZOLE
     Indication: DEPRESSION
     Dosage: 28 PILLS ONCE DAILY TAKEN BY MOUTH
     Route: 048
  2. ZOPICLONE [Concomitant]
     Active Substance: ZOPICLONE
  3. MIRTAZAPINE. [Concomitant]
     Active Substance: MIRTAZAPINE

REACTIONS (8)
  - Hyperhidrosis [None]
  - Skin burning sensation [None]
  - Alopecia [None]
  - Sjogren^s syndrome [None]
  - Speech disorder [None]
  - Asthenia [None]
  - Eye irritation [None]
  - Skin wrinkling [None]

NARRATIVE: CASE EVENT DATE: 20150805
